FAERS Safety Report 9788366 (Version 1)
Quarter: 2013Q4

REPORT INFORMATION
  Report Type: Spontaneous
  Country: PT (occurrence: PT)
  Receive Date: 20131230
  Receipt Date: 20131230
  Transmission Date: 20140711
  Serious: Yes (Other)
  Sender: FDA-Public Use
  Company Number: PHHY2013PT151332

PATIENT
  Age: 64 Year
  Sex: Male

DRUGS (1)
  1. ZOLEDRONATE [Suspect]
     Dosage: 4 MG, EVERY 3 WEEKS
     Route: 042

REACTIONS (2)
  - Osteonecrosis of jaw [Recovering/Resolving]
  - Dysaesthesia [Recovering/Resolving]
